FAERS Safety Report 8988121 (Version 2)
Quarter: 2013Q2

REPORT INFORMATION
  Report Type: Spontaneous
  Country: US (occurrence: US)
  Receive Date: 20121227
  Receipt Date: 20130419
  Transmission Date: 20140414
  Serious: Yes (Hospitalization)
  Sender: FDA-Public Use
  Company Number: US-BAYER-2012-135305

PATIENT
  Age: 45 Year
  Sex: Female
  Weight: 121.54 kg

DRUGS (9)
  1. YAZ [Suspect]
     Indication: CONTRACEPTION
  2. YAZ [Suspect]
     Indication: ACNE CYSTIC
  3. YAZ [Suspect]
     Indication: PREMENSTRUAL DYSPHORIC DISORDER
  4. YAZ [Suspect]
     Indication: PREMENSTRUAL SYNDROME
  5. BEYAZ [Suspect]
     Indication: CONTRACEPTION
  6. BEYAZ [Suspect]
     Indication: ACNE CYSTIC
  7. LEVOTHYROXINE [Concomitant]
     Indication: AUTOIMMUNE THYROIDITIS
     Dosage: UNK
     Dates: start: 2004
  8. LIOTHYROXIN [Concomitant]
     Indication: THYROID DISORDER
     Dosage: UNK
     Dates: start: 2010
  9. WELLBUTRIN [Concomitant]
     Dosage: 150 MG, QD

REACTIONS (20)
  - Deep vein thrombosis [None]
  - Pulmonary embolism [None]
  - Thrombosis [None]
  - Injury [None]
  - Pain [None]
  - General physical health deterioration [None]
  - Anxiety [None]
  - Anhedonia [None]
  - Emotional distress [None]
  - Pain [None]
  - Respiratory arrest [None]
  - Chest discomfort [None]
  - Nerve injury [None]
  - Muscle spasms [None]
  - Pain in extremity [None]
  - Local swelling [None]
  - Plantar fasciitis [None]
  - Pain in extremity [None]
  - Arthralgia [None]
  - Dysstasia [None]
